FAERS Safety Report 21654851 (Version 1)
Quarter: 2022Q4

REPORT INFORMATION
  Report Type: Spontaneous
  Country: US (occurrence: US)
  Receive Date: 20221129
  Receipt Date: 20221129
  Transmission Date: 20230113
  Serious: No
  Sender: FDA-Public Use
  Company Number: US-LA JOLLA PHARMACEUTICAL COMPANY-0000373

PATIENT

DRUGS (6)
  1. GIAPREZA [Suspect]
     Active Substance: ANGIOTENSIN II
     Indication: Hypotension
     Dosage: 2 NG/KG/MIN
     Dates: start: 20201001, end: 20201001
  2. PROPOFOL [Concomitant]
     Active Substance: PROPOFOL
     Indication: Induction of anaesthesia
     Dosage: 100 UNITS, QD
     Dates: start: 20201001, end: 20201001
  3. LIDOCAINE [Concomitant]
     Active Substance: LIDOCAINE
     Indication: Induction of anaesthesia
  4. FENTANYL [Concomitant]
     Active Substance: FENTANYL
     Indication: Analgesic therapy
     Dosage: 150 UNITS, QD
     Dates: start: 20201001, end: 20201001
  5. ROCURONIUM [Concomitant]
     Active Substance: ROCURONIUM BROMIDE
     Indication: General anaesthesia
     Dosage: 50 UNITS, QD
     Dates: start: 20201001, end: 20201001
  6. ISOFLURANE [Concomitant]
     Active Substance: ISOFLURANE
     Indication: Anaesthesia
     Dosage: 0.7%
     Dates: start: 20201001, end: 20201001

REACTIONS (3)
  - Pain in extremity [Not Recovered/Not Resolved]
  - Dysphonia [Not Recovered/Not Resolved]
  - Dyspnoea [Not Recovered/Not Resolved]

NARRATIVE: CASE EVENT DATE: 20201001
